FAERS Safety Report 17493193 (Version 4)
Quarter: 2022Q2

REPORT INFORMATION
  Report Type: Report from Study
  Country: CA (occurrence: None)
  Receive Date: 20200304
  Receipt Date: 20220422
  Transmission Date: 20220720
  Serious: Yes (Hospitalization, Other)
  Sender: FDA-Public Use
  Company Number: CA-ORION CORPORATION ORION PHARMA-TREX2020-1140

PATIENT
  Age: 60 Year
  Weight: 73 kg

DRUGS (51)
  1. METHOTREXATE [Suspect]
     Active Substance: METHOTREXATE
     Indication: Product used for unknown indication
     Route: 065
  2. METHOTREXATE [Suspect]
     Active Substance: METHOTREXATE
     Route: 048
  3. CYCLOSPORINE [Suspect]
     Active Substance: CYCLOSPORINE
     Indication: Product used for unknown indication
     Route: 065
  4. CYCLOSPORINE [Suspect]
     Active Substance: CYCLOSPORINE
     Route: 048
  5. COSENTYX [Suspect]
     Active Substance: SECUKINUMAB
     Indication: Psoriatic arthropathy
     Route: 058
  6. COSENTYX [Suspect]
     Active Substance: SECUKINUMAB
     Indication: Psoriasis
     Route: 058
  7. COSENTYX [Suspect]
     Active Substance: SECUKINUMAB
     Route: 058
  8. COSENTYX [Suspect]
     Active Substance: SECUKINUMAB
     Route: 058
  9. COSENTYX [Suspect]
     Active Substance: SECUKINUMAB
     Route: 058
  10. COSENTYX [Suspect]
     Active Substance: SECUKINUMAB
     Route: 058
  11. COSENTYX [Suspect]
     Active Substance: SECUKINUMAB
     Route: 058
  12. COSENTYX [Suspect]
     Active Substance: SECUKINUMAB
     Route: 065
  13. TOFACITINIB CITRATE [Suspect]
     Active Substance: TOFACITINIB CITRATE
     Indication: Product used for unknown indication
     Route: 065
  14. TOFACITINIB CITRATE [Suspect]
     Active Substance: TOFACITINIB CITRATE
     Route: 065
  15. TOFACITINIB CITRATE [Suspect]
     Active Substance: TOFACITINIB CITRATE
     Route: 065
  16. ACITRETIN [Concomitant]
     Active Substance: ACITRETIN
     Route: 065
  17. CIMZIA [Concomitant]
     Active Substance: CERTOLIZUMAB PEGOL
     Route: 065
  18. CLOBETASOL [Concomitant]
     Active Substance: CLOBETASOL
     Route: 065
  19. CLOBETASOL [Concomitant]
     Active Substance: CLOBETASOL
     Route: 065
  20. CLOBETASOL [Concomitant]
     Active Substance: CLOBETASOL
     Route: 061
  21. ENBREL [Concomitant]
     Active Substance: ETANERCEPT
     Route: 065
  22. HUMIRA [Concomitant]
     Active Substance: ADALIMUMAB
     Route: 065
  23. IXEKIZUMAB [Concomitant]
     Active Substance: IXEKIZUMAB
     Route: 065
  24. IXEKIZUMAB [Concomitant]
     Active Substance: IXEKIZUMAB
     Route: 065
  25. LEVOTHYROXINE [Concomitant]
     Active Substance: LEVOTHYROXINE
     Indication: Hypothyroidism
     Route: 065
  26. LEVOTHYROXINE [Concomitant]
     Active Substance: LEVOTHYROXINE
     Route: 065
  27. NAPROXEN [Concomitant]
     Active Substance: NAPROXEN
     Indication: Psoriatic arthropathy
     Route: 065
  28. NAPROXEN [Concomitant]
     Active Substance: NAPROXEN
     Route: 065
  29. NAPROXEN [Concomitant]
     Active Substance: NAPROXEN
     Route: 065
  30. PREDNISONE [Concomitant]
     Active Substance: PREDNISONE
     Route: 065
  31. PREGABALIN [Concomitant]
     Active Substance: PREGABALIN
     Indication: Tendonitis
     Route: 065
  32. PREGABALIN [Concomitant]
     Active Substance: PREGABALIN
     Route: 065
  33. PREGABALIN [Concomitant]
     Active Substance: PREGABALIN
     Route: 065
  34. PREGABALIN [Concomitant]
     Active Substance: PREGABALIN
     Route: 065
  35. PSORALEN [Concomitant]
     Active Substance: PSORALEN
     Route: 065
  36. ROSUVASTATIN [Concomitant]
     Active Substance: ROSUVASTATIN
     Indication: Blood cholesterol increased
     Route: 065
  37. ROSUVASTATIN [Concomitant]
     Active Substance: ROSUVASTATIN
     Route: 065
  38. ROSUVASTATIN [Concomitant]
     Active Substance: ROSUVASTATIN
     Route: 065
  39. ROSUVASTATIN [Concomitant]
     Active Substance: ROSUVASTATIN
     Route: 065
  40. SYNTHROID [Concomitant]
     Active Substance: LEVOTHYROXINE SODIUM
     Route: 065
  41. TELMISARTAN [Concomitant]
     Active Substance: TELMISARTAN
     Indication: Hypertension
     Route: 065
  42. TELMISARTAN [Concomitant]
     Active Substance: TELMISARTAN
     Route: 065
  43. TELMISARTAN [Concomitant]
     Active Substance: TELMISARTAN
     Route: 065
  44. TELMISARTAN [Concomitant]
     Active Substance: TELMISARTAN
     Route: 065
  45. TRAMADOL [Concomitant]
     Active Substance: TRAMADOL
     Indication: Tendonitis
     Route: 065
  46. TRAMADOL [Concomitant]
     Active Substance: TRAMADOL
     Route: 065
  47. TRAMADOL [Concomitant]
     Active Substance: TRAMADOL
     Route: 065
  48. BETAMETHASONE DIPROPIONATE;CALCIPOTRIOL MONOH [Concomitant]
     Route: 065
  49. GOLIMUMAB [Concomitant]
     Active Substance: GOLIMUMAB
     Route: 065
  50. LEVOTHYROXINE SODIUM [Concomitant]
     Active Substance: LEVOTHYROXINE SODIUM
     Indication: Hypothyroidism
     Route: 065
  51. LEVOTHYROXINE SODIUM [Concomitant]
     Active Substance: LEVOTHYROXINE SODIUM
     Route: 065

REACTIONS (11)
  - Overdose [Unknown]
  - Drug ineffective [Not Recovered/Not Resolved]
  - Product use issue [Unknown]
  - Gait inability [Not Recovered/Not Resolved]
  - Osteoarthritis [Recovered/Resolved]
  - Osteonecrosis [Not Recovered/Not Resolved]
  - Arthralgia [Not Recovered/Not Resolved]
  - Diarrhoea [Not Recovered/Not Resolved]
  - Diffuse alopecia [Not Recovered/Not Resolved]
  - Actinic keratosis [Not Recovered/Not Resolved]
  - Squamous cell carcinoma of skin [Not Recovered/Not Resolved]
